FAERS Safety Report 4801235-6 (Version None)
Quarter: 2005Q4

REPORT INFORMATION
  Report Type: 
  Country: None (occurrence: None)
  Receive Date: 20051012
  Receipt Date: 20050908
  Transmission Date: 20060501
  Serious: Yes (Death)
  Sender: FDA-Public Use
  Company Number: 2005122808

PATIENT
  Sex: Male

DRUGS (1)
  1. BEXTRA [Suspect]
     Indication: OSTEOPOROSIS
     Dosage: 80 MG (40 MG)
     Dates: start: 20040101

REACTIONS (4)
  - ACCIDENT [None]
  - CEREBRAL HAEMORRHAGE [None]
  - FALL [None]
  - HEAD INJURY [None]
